FAERS Safety Report 8609583 (Version 3)
Quarter: 2014Q2

REPORT INFORMATION
  Report Type: Spontaneous
  Country: US (occurrence: US)
  Receive Date: 20120612
  Receipt Date: 20140423
  Transmission Date: 20141212
  Serious: Yes (Hospitalization, Disabling, Other)
  Sender: FDA-Public Use
  Company Number: US-ASTRAZENECA-2012SE34676

PATIENT
  Age: 44 Year
  Sex: Male

DRUGS (19)
  1. NEXIUM [Suspect]
     Indication: GASTROOESOPHAGEAL REFLUX DISEASE
     Route: 048
     Dates: start: 1996, end: 2011
  2. NEXIUM [Suspect]
     Indication: GASTROOESOPHAGEAL REFLUX DISEASE
     Route: 048
     Dates: start: 20091217
  3. NEXIUM [Suspect]
     Indication: GASTROOESOPHAGEAL REFLUX DISEASE
     Route: 048
     Dates: start: 20110106
  4. PROTONIX [Concomitant]
  5. TUMS [Concomitant]
  6. ROLAIDS [Concomitant]
  7. RANITIDINE [Concomitant]
  8. ZETIA [Concomitant]
     Indication: BLOOD CHOLESTEROL INCREASED
  9. SIMVASTATIN [Concomitant]
     Indication: BLOOD CHOLESTEROL INCREASED
  10. CYCLOBENZAPRINE [Concomitant]
     Indication: MUSCLE SPASMS
  11. FLUOXETINE [Concomitant]
     Indication: DEPRESSION
  12. NIASPAN [Concomitant]
     Indication: BLOOD CHOLESTEROL ABNORMAL
  13. BUSPIRONE [Concomitant]
     Indication: ANXIETY
  14. DICLOFENAC SODIUM [Concomitant]
     Indication: INFLAMMATION
  15. POTASSIUM GLUCONATE [Concomitant]
     Indication: NERVOUS SYSTEM DISORDER
  16. POTASSIUM GLUCONATE [Concomitant]
     Indication: INFLAMMATION
  17. VITORIN [Concomitant]
     Dosage: 10/40 BEDTIME
  18. MELOXICAM [Concomitant]
     Dates: start: 20121115
  19. PREDNISONE [Concomitant]
     Dates: start: 20120611

REACTIONS (27)
  - Cardiac disorder [Unknown]
  - Myocardial infarction [Unknown]
  - Lumbar radiculopathy [Unknown]
  - Intervertebral disc degeneration [Unknown]
  - Neuritis [Unknown]
  - Radiculitis lumbosacral [Unknown]
  - Spinal osteoarthritis [Unknown]
  - Bone density decreased [Unknown]
  - Osteoporosis [Unknown]
  - Multiple fractures [Unknown]
  - Bone disorder [Unknown]
  - Bone loss [Unknown]
  - Fall [Unknown]
  - Rib fracture [Unknown]
  - Aortic disorder [Unknown]
  - Arthritis [Unknown]
  - Bone pain [Unknown]
  - Osteogenesis imperfecta [Unknown]
  - Spinal disorder [Unknown]
  - Cardiovascular disorder [Unknown]
  - Rheumatoid arthritis [Unknown]
  - Rickets [Unknown]
  - Androgen deficiency [Unknown]
  - Vitamin D deficiency [Unknown]
  - Angina pectoris [Unknown]
  - Osteopenia [Unknown]
  - Depression [Unknown]
